FAERS Safety Report 6400999-8 (Version None)
Quarter: 2009Q4

REPORT INFORMATION
  Report Type: 
  Country: None (occurrence: None)
  Receive Date: 20091015
  Receipt Date: 20070430
  Transmission Date: 20100525
  Serious: Yes (Disabling)
  Sender: FDA-Public Use
  Company Number: US-ASTRAZENECA-2006UW24633

PATIENT
  Sex: Male
  Weight: 135.2 kg

DRUGS (6)
  1. SEROQUEL [Suspect]
     Indication: SLEEP DISORDER
     Route: 048
  2. SEROQUEL [Suspect]
     Dosage: 25 MG TO 100 MG DAILY
     Route: 048
     Dates: start: 20040119, end: 20060301
  3. LEXAPRO [Concomitant]
     Indication: DEPRESSION
     Dosage: 10 MG TO 20 MG DAILY
     Route: 048
     Dates: start: 20040119
  4. INDERAL [Concomitant]
     Route: 048
     Dates: start: 20040119
  5. IMIPRAMINE [Concomitant]
     Route: 048
     Dates: start: 20040119
  6. AVANDIA [Concomitant]
     Dates: start: 20030513

REACTIONS (1)
  - ILL-DEFINED DISORDER [None]
